FAERS Safety Report 12108800 (Version 1)
Quarter: 2016Q1

REPORT INFORMATION
  Report Type: Spontaneous
  Country: US (occurrence: US)
  Receive Date: 20160224
  Receipt Date: 20160224
  Transmission Date: 20160526
  Serious: Yes (Other)
  Sender: FDA-Public Use
  Company Number: US-ASTRAZENECA-2016SE17624

PATIENT
  Sex: Female

DRUGS (1)
  1. NEXIUM [Suspect]
     Active Substance: ESOMEPRAZOLE MAGNESIUM
     Indication: GASTRITIS
     Route: 048
     Dates: start: 2001

REACTIONS (7)
  - Arthropathy [Unknown]
  - Upper extremity mass [Unknown]
  - Product use issue [Unknown]
  - Rib fracture [Unknown]
  - Muscle spasms [Unknown]
  - Abasia [Unknown]
  - Back disorder [Unknown]

NARRATIVE: CASE EVENT DATE: 201507
